FAERS Safety Report 25112769 (Version 3)
Quarter: 2025Q4

REPORT INFORMATION
  Report Type: Spontaneous
  Country: US (occurrence: US)
  Receive Date: 20250324
  Receipt Date: 20251031
  Transmission Date: 20260118
  Serious: No
  Sender: UCB
  Company Number: US-UCBSA-2024065695

PATIENT

DRUGS (3)
  1. BIMZELX [Suspect]
     Active Substance: BIMEKIZUMAB-BKZX
     Indication: Product used for unknown indication
     Dosage: UNK
  2. BIMZELX [Suspect]
     Active Substance: BIMEKIZUMAB-BKZX
     Dosage: UNK
  3. BIMZELX [Suspect]
     Active Substance: BIMEKIZUMAB-BKZX
     Dosage: UNK

REACTIONS (2)
  - Product leakage [Unknown]
  - Product dose omission issue [Unknown]
